FAERS Safety Report 6721985-4 (Version None)
Quarter: 2010Q2

REPORT INFORMATION
  Report Type: 
  Country: None (occurrence: None)
  Receive Date: 20100512
  Receipt Date: 20100506
  Transmission Date: 20101027
  Serious: Yes (Other)
  Sender: FDA-Public Use
  Company Number: B0647182A

PATIENT
  Sex: Male
  Weight: 175 kg

DRUGS (1)
  1. MALARONE [Suspect]
     Indication: MALARIA PROPHYLAXIS
     Dosage: 1TAB PER DAY
     Route: 048
     Dates: start: 20100309, end: 20100320

REACTIONS (8)
  - ATRIAL FIBRILLATION [None]
  - DYSPNOEA [None]
  - FEELING ABNORMAL [None]
  - HEART RATE INCREASED [None]
  - MALAISE [None]
  - MOBILITY DECREASED [None]
  - POOR QUALITY SLEEP [None]
  - TACHYCARDIA [None]
